FAERS Safety Report 7230371-2 (Version None)
Quarter: 2011Q1

REPORT INFORMATION
  Report Type: 
  Country: None (occurrence: None)
  Receive Date: 20110118
  Receipt Date: 20110110
  Transmission Date: 20110831
  Serious: Yes (Hospitalization)
  Sender: FDA-Public Use
  Company Number: DE-JNJFOC-20110102232

PATIENT
  Age: 59 Year
  Sex: Female

DRUGS (12)
  1. MAGNESIUM VERLA [Concomitant]
  2. REMICADE [Suspect]
     Indication: CROHN'S DISEASE
     Route: 042
  3. VITAMIN B-12 [Concomitant]
  4. QUANTALAN [Concomitant]
  5. REMICADE [Suspect]
     Route: 042
  6. PASPERTIN [Concomitant]
     Dosage: DOSE 20-30 DROPS BID
  7. REMICADE [Suspect]
     Route: 042
  8. PANTOPRAZOLE [Concomitant]
  9. REMICADE [Suspect]
     Route: 042
  10. CALCIUM VERLA [Concomitant]
  11. D3-VICOTRAT [Concomitant]
  12. ALLOPURINOL [Concomitant]

REACTIONS (7)
  - ANASTOMOTIC STENOSIS [None]
  - BACK PAIN [None]
  - BRONCHITIS [None]
  - ILEAL ULCER [None]
  - ARTHRALGIA [None]
  - SINUSITIS [None]
  - BONE PAIN [None]
